FAERS Safety Report 11083714 (Version 2)
Quarter: 2015Q4

REPORT INFORMATION
  Report Type: Spontaneous
  Country: JP (occurrence: JP)
  Receive Date: 20150501
  Receipt Date: 20151002
  Transmission Date: 20160304
  Serious: Yes (Hospitalization, Other)
  Sender: FDA-Public Use
  Company Number: JP-MYLANLABS-2015M1013211

PATIENT

DRUGS (1)
  1. PREDONINE [Suspect]
     Active Substance: PREDNISOLONE\PREDNISOLONE ACETATE\PREDNISOLONE SODIUM SUCCINATE
     Indication: SYSTEMIC LUPUS ERYTHEMATOSUS
     Dosage: 15 MG, UNK
     Route: 048
     Dates: start: 2004

REACTIONS (6)
  - Abdominal hernia [Recovering/Resolving]
  - Lumbar vertebral fracture [Unknown]
  - Central obesity [Unknown]
  - Osteoporosis [Unknown]
  - Muscle rupture [Recovering/Resolving]
  - Cushingoid [Unknown]

NARRATIVE: CASE EVENT DATE: 201203
